FAERS Safety Report 17428543 (Version 1)
Quarter: 2020Q1

REPORT INFORMATION
  Report Type: Report from Study
  Country: CA (occurrence: CA)
  Receive Date: 20200218
  Receipt Date: 20200218
  Transmission Date: 20200409
  Serious: Yes (Death, Other)
  Sender: FDA-Public Use
  Company Number: CA-ASTRAZENECA-2019SF04044

PATIENT
  Age: 24009 Day
  Sex: Female
  Weight: 60 kg

DRUGS (3)
  1. ULTIBRO [Concomitant]
     Active Substance: GLYCOPYRRONIUM\INDACATEROL
     Indication: ASTHMA
  2. ASMANEX [Concomitant]
     Active Substance: MOMETASONE FUROATE
     Indication: ASTHMA
  3. FASENRA [Suspect]
     Active Substance: BENRALIZUMAB
     Indication: ASTHMA
     Route: 058
     Dates: start: 20180507, end: 20191015

REACTIONS (5)
  - Death [Fatal]
  - Hepatic cancer [Fatal]
  - Diverticulitis [Unknown]
  - Abdominal pain upper [Unknown]
  - Appendicitis [Unknown]

NARRATIVE: CASE EVENT DATE: 20191204
